FAERS Safety Report 5076455-9 (Version None)
Quarter: 2006Q3

REPORT INFORMATION
  Report Type: 
  Country: None (occurrence: None)
  Receive Date: 20060810
  Receipt Date: 20060523
  Transmission Date: 20061208
  Serious: Yes (Other)
  Sender: FDA-Public Use
  Company Number: US-BAYER-200612184BCC

PATIENT
  Age: 59 Year
  Sex: Male
  Weight: 77 kg

DRUGS (7)
  1. ALEVE (CAPLET) [Suspect]
     Indication: ARTHRALGIA
     Dosage: TOTAL DAILY DOSE: 880 MG  UNIT DOSE: 220 MG
     Route: 048
     Dates: start: 20041201, end: 20060521
  2. EXTRA STRENGTH BAYER BACK + BODY PAIN [Suspect]
     Indication: BACK PAIN
     Dosage: UNIT DOSE: 500 MG
     Route: 048
     Dates: end: 20060521
  3. EXTRA STRENGTH BAYER BACK + BODY PAIN [Suspect]
     Dosage: UNIT DOSE: 500 MG
     Route: 048
     Dates: start: 20060520
  4. ASPIRIN [Suspect]
     Indication: PROPHYLAXIS
     Dosage: TOTAL DAILY DOSE: 81 MG  UNIT DOSE: 81 MG
     Route: 048
     Dates: start: 20010101
  5. ALEVE COLD AND SINUS [Suspect]
     Indication: NASOPHARYNGITIS
     Dosage: TOTAL DAILY DOSE: 880 MG  UNIT DOSE: 220 MG
     Route: 048
     Dates: start: 20060501, end: 20060521
  6. ADVIL COLD AND SINUS [Concomitant]
  7. CENTRUM MULTIVITAMIN [Concomitant]

REACTIONS (1)
  - BLOOD PRESSURE INCREASED [None]
